FAERS Safety Report 5011365-4 (Version None)
Quarter: 2006Q2

REPORT INFORMATION
  Report Type: 
  Country: None (occurrence: None)
  Receive Date: 20060404
  Receipt Date: 20060110
  Transmission Date: 20061013
  Serious: No
  Sender: FDA-Public Use
  Company Number: US200601001631

PATIENT
  Sex: Female

DRUGS (5)
  1. CYMBALTA [Suspect]
     Indication: ANXIETY
     Dosage: 30 MG, DAILY (1/D); SEE IMAGE
     Dates: start: 20051102, end: 20051109
  2. CYMBALTA [Suspect]
     Indication: ANXIETY
     Dosage: 30 MG, DAILY (1/D); SEE IMAGE
     Dates: start: 20051110
  3. ATIVAN [Concomitant]
  4. MIRCETTE /NET/ (DESOGESTREL, ETHINYLESTRADIOL) [Concomitant]
  5. ALLERGY MEDICATION [Concomitant]

REACTIONS (8)
  - CONSTIPATION [None]
  - DEHYDRATION [None]
  - DRY EYE [None]
  - FATIGUE [None]
  - MUSCULAR WEAKNESS [None]
  - MYALGIA [None]
  - PROTEIN TOTAL DECREASED [None]
  - VISUAL DISTURBANCE [None]
